FAERS Safety Report 16638304 (Version 4)
Quarter: 2019Q3

REPORT INFORMATION
  Report Type: Report from Study
  Country: US (occurrence: US)
  Receive Date: 20190726
  Receipt Date: 20190905
  Transmission Date: 20191004
  Serious: Yes (Hospitalization, Other)
  Sender: FDA-Public Use
  Company Number: US-JNJFOC-20190601429

PATIENT
  Sex: Female

DRUGS (19)
  1. LEVOTHYROXINE. [Concomitant]
     Active Substance: LEVOTHYROXINE
  2. CRANBERRY                          /01512301/ [Concomitant]
     Active Substance: CRANBERRY
  3. TROSPIUM [Concomitant]
     Active Substance: TROSPIUM
  4. METAXALONE. [Concomitant]
     Active Substance: METAXALONE
  5. GABAPENTIN. [Concomitant]
     Active Substance: GABAPENTIN
  6. PREMARIN [Concomitant]
     Active Substance: ESTROGENS, CONJUGATED
  7. INTEGRA [Concomitant]
     Active Substance: DIETARY SUPPLEMENT
  8. IMBRUVICA [Suspect]
     Active Substance: IBRUTINIB
     Route: 048
     Dates: start: 20190223, end: 20190817
  9. IMBRUVICA [Suspect]
     Active Substance: IBRUTINIB
     Route: 048
     Dates: start: 20190818
  10. KEFLEX [Concomitant]
     Active Substance: CEPHALEXIN
  11. FUROSEMIDE. [Concomitant]
     Active Substance: FUROSEMIDE
  12. TOPROL XL [Concomitant]
     Active Substance: METOPROLOL SUCCINATE
  13. IMBRUVICA [Suspect]
     Active Substance: IBRUTINIB
     Indication: LYMPHOCYTIC LEUKAEMIA
     Route: 048
     Dates: start: 20190222
  14. SERTRALINE [Concomitant]
     Active Substance: SERTRALINE HYDROCHLORIDE
  15. BALSALAZIDE [Concomitant]
     Active Substance: BALSALAZIDE
  16. SIMVASTATIN. [Concomitant]
     Active Substance: SIMVASTATIN
  17. PRILOSEC [Concomitant]
     Active Substance: OMEPRAZOLE MAGNESIUM
  18. CEPHALEXIN                         /00145501/ [Concomitant]
     Active Substance: CEPHALEXIN
  19. TYLENOL [Concomitant]
     Active Substance: ACETAMINOPHEN

REACTIONS (12)
  - Cognitive disorder [Unknown]
  - Arthralgia [Unknown]
  - Knee arthroplasty [Unknown]
  - Psoriasis [Unknown]
  - Spinal stenosis [Unknown]
  - Dyspnoea [Unknown]
  - Urinary tract infection [Not Recovered/Not Resolved]
  - Pain in extremity [Unknown]
  - White blood cell count decreased [Unknown]
  - Medical device site infection [Unknown]
  - Urinary incontinence [Not Recovered/Not Resolved]
  - Electrocardiogram abnormal [Unknown]
